FAERS Safety Report 25992683 (Version 1)
Quarter: 2025Q4

REPORT INFORMATION
  Report Type: Spontaneous
  Country: US (occurrence: US)
  Receive Date: 20251103
  Receipt Date: 20251103
  Transmission Date: 20260117
  Serious: No
  Sender: BIOGEN
  Company Number: US-BIOGEN-2020BI00921135

PATIENT
  Age: 51 Year
  Sex: Female

DRUGS (2)
  1. TYSABRI [Suspect]
     Active Substance: NATALIZUMAB
     Indication: Multiple sclerosis
     Dates: start: 20080117
  2. TYSABRI [Suspect]
     Active Substance: NATALIZUMAB

REACTIONS (2)
  - Prescribed underdose [Not Recovered/Not Resolved]
  - Illness [Recovered/Resolved]
